FAERS Safety Report 7449697-2 (Version None)
Quarter: 2011Q2

REPORT INFORMATION
  Report Type: 
  Country: None (occurrence: None)
  Receive Date: 20110421
  Receipt Date: 20110310
  Transmission Date: 20111010
  Serious: Yes (Hospitalization, Other)
  Sender: FDA-Public Use
  Company Number: WAES 0911USA03410

PATIENT
  Age: 68 Year
  Sex: Male

DRUGS (10)
  1. BORTEZOMIB [Suspect]
     Indication: MULTIPLE MYELOMA
     Dosage: 2.2 MG/M [2]; 1.3 MG/M [2]; 2.2 MG/M [2]
     Dates: start: 20091120, end: 20091120
  2. BORTEZOMIB [Suspect]
     Indication: MULTIPLE MYELOMA
     Dosage: 2.2 MG/M [2]; 1.3 MG/M [2]; 2.2 MG/M [2]
     Dates: start: 20091020, end: 20091023
  3. BORTEZOMIB [Suspect]
     Indication: MULTIPLE MYELOMA
     Dosage: 2.2 MG/M [2]; 1.3 MG/M [2]; 2.2 MG/M [2]
     Dates: start: 20091113, end: 20091116
  4. ACYCLOVIR [Concomitant]
  5. BISOPROLOL FUMARATE [Concomitant]
  6. CAP VORINOSTAT [Suspect]
     Indication: MULTIPLE MYELOMA
     Dosage: 400 MG/DAILY PO; 400 MG/DAILY PO; 400 MG/DAILY PO
     Route: 048
     Dates: start: 20091020, end: 20091023
  7. CAP VORINOSTAT [Suspect]
     Indication: MULTIPLE MYELOMA
     Dosage: 400 MG/DAILY PO; 400 MG/DAILY PO; 400 MG/DAILY PO
     Route: 048
     Dates: start: 20091119, end: 20091120
  8. CAP VORINOSTAT [Suspect]
     Indication: MULTIPLE MYELOMA
     Dosage: 400 MG/DAILY PO; 400 MG/DAILY PO; 400 MG/DAILY PO
     Route: 048
     Dates: start: 20091113, end: 20091116
  9. AMOXICILLIN AND CLAVULANATE POTASSIUM [Concomitant]
  10. LANSOPRAZOLE [Concomitant]

REACTIONS (15)
  - HYPOTENSION [None]
  - ASPARTATE AMINOTRANSFERASE INCREASED [None]
  - LOWER RESPIRATORY TRACT INFECTION [None]
  - PALPITATIONS [None]
  - PNEUMOCYSTIS JIROVECI PNEUMONIA [None]
  - TACHYCARDIA [None]
  - THROMBOCYTOPENIA [None]
  - BLOOD LACTATE DEHYDROGENASE INCREASED [None]
  - INFECTION [None]
  - HAEMOGLOBIN DECREASED [None]
  - DIARRHOEA [None]
  - HEADACHE [None]
  - FEBRILE NEUTROPENIA [None]
  - ANAEMIA [None]
  - ALANINE AMINOTRANSFERASE INCREASED [None]
